FAERS Safety Report 6679657-0 (Version None)
Quarter: 2010Q2

REPORT INFORMATION
  Report Type: 
  Country: None (occurrence: None)
  Receive Date: 20100413
  Receipt Date: 20100108
  Transmission Date: 20101027
  Serious: Yes (Other)
  Sender: FDA-Public Use
  Company Number: B0619615A

PATIENT
  Sex: Male
  Weight: 86 kg

DRUGS (1)
  1. SERETAIDE [Suspect]
     Indication: ASTHMA
     Route: 055
     Dates: end: 20091215

REACTIONS (3)
  - ASTHMATIC CRISIS [None]
  - DRUG INEFFECTIVE [None]
  - PRODUCT QUALITY ISSUE [None]
